FAERS Safety Report 8554213 (Version 5)
Quarter: 2012Q4

REPORT INFORMATION
  Report Type: 
  Country: US (occurrence: US)
  Receive Date: 20120509
  Receipt Date: 20121101
  Transmission Date: 20130627
  Serious: Yes (Hospitalization, Disabling)
  Sender: FDA-Public Use
  Company Number: US-GLAXOSMITHKLINE-A0976861A

PATIENT
  Age: 16 Year
  Sex: Male

DRUGS (5)
  1. ADVAIR [Suspect]
     Indication: ASTHMA
     Dosage: 1PUFF Twice per day
     Route: 055
     Dates: start: 20010215, end: 201009
  2. ZYRTEC [Concomitant]
  3. SINGULAIR [Concomitant]
  4. CONCERTA [Concomitant]
  5. ALBUTEROL [Concomitant]

REACTIONS (7)
  - Acute respiratory failure [Not Recovered/Not Resolved]
  - Asthma [Unknown]
  - Brain injury [Unknown]
  - Cardio-respiratory arrest [Unknown]
  - Apallic syndrome [Unknown]
  - Cognitive disorder [Unknown]
  - Blood pressure increased [Unknown]
